FAERS Safety Report 6284389-7 (Version None)
Quarter: 2009Q3

REPORT INFORMATION
  Report Type: 
  Country: None (occurrence: None)
  Receive Date: 20090727
  Receipt Date: 20090715
  Transmission Date: 20100115
  Serious: Yes (Hospitalization)
  Sender: FDA-Public Use
  Company Number: US-ROCHE-638799

PATIENT
  Age: 73 Year
  Sex: Female
  Weight: 111.1 kg

DRUGS (6)
  1. BONIVA [Suspect]
     Indication: OSTEOPOROSIS
     Route: 048
     Dates: start: 20060101
  2. CALCIUM [Concomitant]
     Indication: OSTEOPOROSIS
     Route: 048
  3. VIT D [Concomitant]
     Indication: OSTEOPOROSIS
     Route: 048
  4. LISINOPRIL [Concomitant]
     Route: 048
  5. FEMARA [Concomitant]
     Indication: BREAST CANCER
     Route: 048
     Dates: start: 20070101
  6. PREVACID [Concomitant]
     Route: 048

REACTIONS (5)
  - HAIR GROWTH ABNORMAL [None]
  - MULTIPLE FRACTURES [None]
  - PAIN IN EXTREMITY [None]
  - SYNCOPE [None]
  - THROMBOSIS [None]
